FAERS Safety Report 7280214-6 (Version None)
Quarter: 2011Q1

REPORT INFORMATION
  Report Type: 
  Country: None (occurrence: None)
  Receive Date: 20110208
  Receipt Date: 20110204
  Transmission Date: 20110831
  Serious: No
  Sender: FDA-Public Use
  Company Number: FR-SANOFI-AVENTIS-2010SA075584

PATIENT

DRUGS (1)
  1. MULTAQ [Suspect]
     Route: 048
     Dates: start: 20100101

REACTIONS (1)
  - DYSPNOEA [None]
